FAERS Safety Report 5254507-8 (Version None)
Quarter: 2007Q1

REPORT INFORMATION
  Report Type: 
  Country: None (occurrence: None)
  Receive Date: 20070302
  Receipt Date: 20070220
  Transmission Date: 20070707
  Serious: Yes (Other)
  Sender: FDA-Public Use
  Company Number: JP-PFIZER INC-2007005511

PATIENT
  Sex: Female

DRUGS (1)
  1. ZITHROMAC [Suspect]
     Indication: GINGIVAL ABSCESS
     Dosage: DAILY DOSE:500MG
     Route: 048
     Dates: start: 20061130, end: 20061202

REACTIONS (2)
  - ACUTE GENERALISED EXANTHEMATOUS PUSTULOSIS [None]
  - GAIT DISTURBANCE [None]
